FAERS Safety Report 6291742-4 (Version None)
Quarter: 2009Q3

REPORT INFORMATION
  Report Type: 
  Country: None (occurrence: None)
  Receive Date: 20090730
  Receipt Date: 20090722
  Transmission Date: 20100115
  Serious: Yes (Disabling)
  Sender: FDA-Public Use
  Company Number: MX-ASTRAZENECA-2009UW21243

PATIENT
  Age: 48 Year
  Sex: Female

DRUGS (4)
  1. SEROQUEL XR [Suspect]
     Indication: BIPOLAR DISORDER
     Route: 048
  2. CYMBALTA [Concomitant]
  3. LAMICTAL [Concomitant]
  4. HORMONES [Concomitant]

REACTIONS (3)
  - CHROMATOPSIA [None]
  - DIPLOPIA [None]
  - PHOTOPSIA [None]
